FAERS Safety Report 10012874 (Version 1)
Quarter: 2014Q1

REPORT INFORMATION
  Report Type: Spontaneous
  Country: RU (occurrence: RU)
  Receive Date: 20140314
  Receipt Date: 20140314
  Transmission Date: 20141002
  Serious: Yes (Other)
  Sender: FDA-Public Use
  Company Number: RU-PFIZER INC-2014073951

PATIENT
  Age: 47 Year
  Sex: Male

DRUGS (1)
  1. CHAMPIX [Suspect]
     Indication: SMOKING CESSATION THERAPY
     Dosage: UNK
     Route: 048
     Dates: start: 2011, end: 2011

REACTIONS (3)
  - Laryngeal cancer [Not Recovered/Not Resolved]
  - Increased appetite [Recovered/Resolved]
  - Libido decreased [Recovered/Resolved]
